FAERS Safety Report 11100276 (Version 1)
Quarter: 2015Q2

REPORT INFORMATION
  Report Type: Spontaneous
  Country: None (occurrence: None)
  Receive Date: 20150507
  Receipt Date: 20150507
  Transmission Date: 20150821
  Serious: Yes (Other)
  Sender: FDA-Public Use
  Company Number: None

PATIENT
  Age: 55 Year
  Sex: Male
  Weight: 58.97 kg

DRUGS (3)
  1. COUGH DROPS [Concomitant]
  2. VICKS NYQUIL [Concomitant]
     Active Substance: ACETAMINOPHEN\DEXTROMETHORPHAN HYDROBROMIDE\DOXYLAMINE SUCCINATE
  3. BENZONATATE. [Suspect]
     Active Substance: BENZONATATE
     Indication: ANTITUSSIVE THERAPY
     Route: 048
     Dates: start: 20150419, end: 20150429

REACTIONS (3)
  - Weight increased [None]
  - Peripheral swelling [None]
  - Fluid retention [None]

NARRATIVE: CASE EVENT DATE: 20150419
